FAERS Safety Report 7938906-9 (Version None)
Quarter: 2011Q4

REPORT INFORMATION
  Report Type: 
  Country: None (occurrence: None)
  Receive Date: 20111124
  Receipt Date: 20111114
  Transmission Date: 20120403
  Serious: No
  Sender: FDA-Public Use
  Company Number: US-JNJFOC-20111105841

PATIENT
  Sex: Female
  Weight: 67.13 kg

DRUGS (1)
  1. DURAGESIC-100 [Suspect]
     Indication: SCIATICA
     Route: 062
     Dates: start: 20111001

REACTIONS (3)
  - WRONG TECHNIQUE IN DRUG USAGE PROCESS [None]
  - PRODUCT QUALITY ISSUE [None]
  - BREAKTHROUGH PAIN [None]
